FAERS Safety Report 19792453 (Version 2)
Quarter: 2022Q1

REPORT INFORMATION
  Report Type: Spontaneous
  Country: FR (occurrence: FR)
  Receive Date: 20210906
  Receipt Date: 20220106
  Transmission Date: 20220423
  Serious: Yes (Hospitalization, Other)
  Sender: FDA-Public Use
  Company Number: FR-AFSSAPS-NT20213449

PATIENT
  Age: 28 Year
  Sex: Male
  Weight: 60 kg

DRUGS (5)
  1. LINEZOLID [Suspect]
     Active Substance: LINEZOLID
     Indication: Bacterial infection
     Dosage: 1.2 GRAM 600MG 2 FOIS PAR JOUR 9600MG TWICE A DAY)
     Route: 048
     Dates: start: 20210722, end: 20210802
  2. MOXIFLOXACIN [Suspect]
     Active Substance: MOXIFLOXACIN
     Indication: Bacterial infection
     Dosage: 400 MILLIGRAM
     Route: 048
     Dates: start: 20210803, end: 20210811
  3. COMIRNATY [Suspect]
     Active Substance: TOZINAMERAN
     Indication: COVID-19 immunisation
     Dosage: 1 DOSAGE FORM
     Route: 030
     Dates: start: 20210715
  4. IRON SUCROSE [Suspect]
     Active Substance: IRON SUCROSE
     Indication: Anaemia postoperative
     Dosage: 300 MILLIGRAM
     Route: 041
     Dates: start: 20210728, end: 20210730
  5. PIPERACILLIN SODIUM\TAZOBACTAM SODIUM [Suspect]
     Active Substance: PIPERACILLIN SODIUM\TAZOBACTAM SODIUM
     Indication: Bacterial infection
     Dosage: 16 GRAM (4G TOUTES LES 8 HEURES (4G EVERY 8 HOURS)
     Route: 041
     Dates: start: 20210721, end: 20210811

REACTIONS (2)
  - Haemophagocytic lymphohistiocytosis [Recovered/Resolved]
  - Drug reaction with eosinophilia and systemic symptoms [Recovered/Resolved]

NARRATIVE: CASE EVENT DATE: 20210809
